FAERS Safety Report 12156889 (Version 2)
Quarter: 2016Q1

REPORT INFORMATION
  Report Type: Spontaneous
  Country: BR (occurrence: BR)
  Receive Date: 20160307
  Receipt Date: 20160318
  Transmission Date: 20160526
  Serious: Yes (Disabling, Other)
  Sender: FDA-Public Use
  Company Number: BR-ABBVIE-16P-020-1575840-00

PATIENT
  Age: 44 Year
  Sex: Male
  Weight: 70 kg

DRUGS (3)
  1. CARBAMAZEPINE. [Concomitant]
     Active Substance: CARBAMAZEPINE
     Indication: SEIZURE
     Dosage: MORNING AND NIGHT;DAILY DOSE: 400 MILLIGRAM
     Route: 048
  2. PHENOBARBITAL. [Concomitant]
     Active Substance: PHENOBARBITAL
     Indication: MENTAL DISORDER
     Route: 048
  3. DEPAKENE [Suspect]
     Active Substance: VALPROIC ACID
     Indication: SEIZURE
     Dosage: MORNING AND NIGHT;DAILY DOSE: 1000 MILLIGRAM
     Route: 048
     Dates: start: 201602, end: 201602

REACTIONS (9)
  - Tremor [Recovering/Resolving]
  - Feeling abnormal [Recovering/Resolving]
  - Pollakiuria [Not Recovered/Not Resolved]
  - Speech disorder [Recovering/Resolving]
  - Abasia [Recovering/Resolving]
  - Seizure [Recovered/Resolved]
  - Bedridden [Recovering/Resolving]
  - Dizziness [Recovering/Resolving]
  - Feeling abnormal [Unknown]

NARRATIVE: CASE EVENT DATE: 201602
